FAERS Safety Report 5616437-9 (Version None)
Quarter: 2008Q1

REPORT INFORMATION
  Report Type: 
  Country: None (occurrence: None)
  Receive Date: 20080207
  Receipt Date: 20080205
  Transmission Date: 20080703
  Serious: Yes (Other)
  Sender: FDA-Public Use
  Company Number: GB-JNJFOC-20080104700

PATIENT
  Sex: Male
  Weight: 31.6 kg

DRUGS (1)
  1. CONCERTA [Suspect]
     Indication: ATTENTION DEFICIT/HYPERACTIVITY DISORDER
     Route: 048
     Dates: start: 20080116, end: 20080116

REACTIONS (6)
  - BALANCE DISORDER [None]
  - DIZZINESS [None]
  - HALLUCINATION [None]
  - HYPERACUSIS [None]
  - RESTLESSNESS [None]
  - VOMITING [None]
